FAERS Safety Report 9685347 (Version 1)
Quarter: 2013Q4

REPORT INFORMATION
  Report Type: Spontaneous
  Country: US (occurrence: None)
  Receive Date: 20131112
  Receipt Date: 20131112
  Transmission Date: 20140711
  Serious: No
  Sender: FDA-Public Use
  Company Number: None

PATIENT
  Sex: Female
  Weight: 63.05 kg

DRUGS (15)
  1. CLINDAMYCIN [Suspect]
     Indication: INFECTION PROPHYLAXIS
     Dosage: 300 MG 2 PILLS 1 HOUR BEFORE DENTAL PROCEDURES BY MOUTH
     Route: 048
     Dates: start: 20131016, end: 20131016
  2. OMEPRAZOLE [Concomitant]
  3. PROBIOTIC [Concomitant]
  4. ATTENOLOL [Concomitant]
  5. FAMOTADINE [Concomitant]
  6. DOXEPIN [Concomitant]
  7. CALCIUM [Concomitant]
  8. VITAMIN D3 [Concomitant]
  9. B6 [Concomitant]
  10. GLUCOSAMINE SULFATE [Concomitant]
  11. NIACIN [Concomitant]
  12. BIOTIN [Concomitant]
  13. FISH OIL [Concomitant]
  14. COQ10 [Concomitant]
  15. TYELNOL [Concomitant]

REACTIONS (1)
  - Dysgeusia [None]
